FAERS Safety Report 17284325 (Version 4)
Quarter: 2021Q3

REPORT INFORMATION
  Report Type: Spontaneous
  Country: US (occurrence: US)
  Receive Date: 20200117
  Receipt Date: 20210715
  Transmission Date: 20211014
  Serious: Yes (Other)
  Sender: FDA-Public Use
  Company Number: US-PFIZER INC-2020021170

PATIENT
  Age: 63 Year
  Sex: Female
  Weight: 66 kg

DRUGS (1)
  1. ELELYSO [Suspect]
     Active Substance: TALIGLUCERASE ALFA
     Indication: GAUCHER^S DISEASE
     Dosage: 2000 UNITS 2X A MONTH
     Route: 042
     Dates: start: 20200113

REACTIONS (12)
  - Somnolence [Not Recovered/Not Resolved]
  - Hepatomegaly [Unknown]
  - Nausea [Unknown]
  - Hypertension [Unknown]
  - Anxiety [Unknown]
  - Splenomegaly [Unknown]
  - Eye disorder [Unknown]
  - Abdominal discomfort [Unknown]
  - Diabetes mellitus [Unknown]
  - Dysgeusia [Recovered/Resolved]
  - Fatigue [Recovering/Resolving]
  - Asthenia [Unknown]

NARRATIVE: CASE EVENT DATE: 20200113
